FAERS Safety Report 7772287-9 (Version None)
Quarter: 2011Q3

REPORT INFORMATION
  Report Type: 
  Country: None (occurrence: None)
  Receive Date: 20110922
  Receipt Date: 20110520
  Transmission Date: 20111222
  Serious: Yes (Hospitalization)
  Sender: FDA-Public Use
  Company Number: US-ASTRAZENECA-2011SE00807

PATIENT
  Age: 36 Year
  Sex: Male
  Weight: 172.4 kg

DRUGS (9)
  1. PRAVASTATIN [Concomitant]
     Indication: HYPERLIPIDAEMIA
  2. RISPERDAL [Concomitant]
     Indication: SCHIZOPHRENIA
     Dates: start: 20090318, end: 20100817
  3. COGENTIN [Concomitant]
     Indication: AKATHISIA
     Dates: start: 20090422, end: 20100810
  4. PROPRANOLOL [Concomitant]
     Indication: AKATHISIA
     Dates: start: 20090318, end: 20100817
  5. SEROQUEL XR [Suspect]
     Route: 048
     Dates: start: 20100818, end: 20100922
  6. METFORMIN [Concomitant]
     Indication: TYPE 2 DIABETES MELLITUS
  7. SEROQUEL XR [Suspect]
     Indication: SCHIZOPHRENIA
     Route: 048
     Dates: start: 20100810, end: 20100817
  8. ACTOS [Concomitant]
     Indication: TYPE 2 DIABETES MELLITUS
  9. GEMFIBROZIL [Concomitant]
     Indication: HYPERTRIGLYCERIDAEMIA

REACTIONS (2)
  - HYPERGLYCAEMIA [None]
  - TYPE 2 DIABETES MELLITUS [None]
